FAERS Safety Report 4484274-7 (Version None)
Quarter: 2004Q3

REPORT INFORMATION
  Report Type: 
  Country: None (occurrence: None)
  Receive Date: 20040921
  Receipt Date: 20040130
  Transmission Date: 20050211
  Serious: Yes (Hospitalization)
  Sender: FDA-Public Use
  Company Number: 163-20785-04020006

PATIENT
  Age: 60 Year
  Sex: Female
  Weight: 66.2252 kg

DRUGS (4)
  1. THALOMID [Suspect]
     Indication: PANCREATIC CARCINOMA METASTATIC
     Dosage: 200 MG, DAILY, ORAL
     Route: 048
     Dates: start: 20031223, end: 20040121
  2. THALOMID [Suspect]
     Indication: PANCREATIC CARCINOMA METASTATIC
     Dosage: 200 MG, DAILY, ORAL
     Route: 048
     Dates: start: 20040127, end: 20040130
  3. GEMCITABINE (GEMCITABINE) [Suspect]
     Indication: PANCREATIC CARCINOMA METASTATIC
     Dosage: 1000 MG/M2, DAYS 1, 8, 15 OF 21 DAY CYCLE
     Dates: start: 20031230, end: 20040113
  4. COLACE (DOCUSATE SODIUM) [Concomitant]

REACTIONS (8)
  - ACTIVATED PARTIAL THROMBOPLASTIN TIME PROLONGED [None]
  - DEEP VEIN THROMBOSIS [None]
  - DIFFICULTY IN WALKING [None]
  - HAEMATOCRIT DECREASED [None]
  - LEUKOCYTOSIS [None]
  - OEDEMA PERIPHERAL [None]
  - PAIN [None]
  - SWELLING [None]
